FAERS Safety Report 14687150 (Version 2)
Quarter: 2018Q2

REPORT INFORMATION
  Report Type: Report from Study
  Country: CO (occurrence: CO)
  Receive Date: 20180328
  Receipt Date: 20180509
  Transmission Date: 20180711
  Serious: Yes (Hospitalization)
  Sender: FDA-Public Use
  Company Number: CO-BIOGEN-2018BI00547397

PATIENT
  Age: 67 Year
  Sex: Female

DRUGS (2)
  1. TYSABRI [Suspect]
     Active Substance: NATALIZUMAB
     Indication: MULTIPLE SCLEROSIS
     Dosage: INFUSED OVER ONE HOUR
     Route: 042
     Dates: start: 20150814
  2. TYSABRI [Suspect]
     Active Substance: NATALIZUMAB
     Dosage: INFUSED OVER ONE HOUR
     Route: 042
     Dates: start: 20170402

REACTIONS (4)
  - Speech disorder [Unknown]
  - Cerebral thrombosis [Unknown]
  - Gait disturbance [Unknown]
  - Headache [Unknown]

NARRATIVE: CASE EVENT DATE: 20180319
